FAERS Safety Report 6173641-1 (Version None)
Quarter: 2009Q2

REPORT INFORMATION
  Report Type: 
  Country: None (occurrence: None)
  Receive Date: 20090430
  Receipt Date: 20090422
  Transmission Date: 20091009
  Serious: Yes (Hospitalization, Other)
  Sender: FDA-Public Use
  Company Number: US-MERCK-0801USA04793

PATIENT
  Age: 74 Year
  Sex: Female
  Weight: 59 kg

DRUGS (2)
  1. FOSAMAX [Suspect]
     Indication: OSTEOPOROSIS
     Route: 048
     Dates: start: 19960301, end: 20010101
  2. FOSAMAX [Suspect]
     Route: 048
     Dates: start: 20020101, end: 20061002

REACTIONS (20)
  - APHTHOUS STOMATITIS [None]
  - DENTAL CARIES [None]
  - DENTAL NECROSIS [None]
  - DIPLOPIA [None]
  - FISTULA [None]
  - HEPATITIS [None]
  - HYPERPARATHYROIDISM [None]
  - HYPERTHYROIDISM [None]
  - HYPOAESTHESIA ORAL [None]
  - INFECTION [None]
  - JAUNDICE [None]
  - LIVER DISORDER [None]
  - NODULE [None]
  - ORAL DISORDER [None]
  - ORAL TORUS [None]
  - OSTEONECROSIS [None]
  - PAIN IN JAW [None]
  - PARATHYROID TUMOUR BENIGN [None]
  - SINUS DISORDER [None]
  - SWELLING [None]
